FAERS Safety Report 7769452-3 (Version None)
Quarter: 2011Q3

REPORT INFORMATION
  Report Type: 
  Country: None (occurrence: None)
  Receive Date: 20110922
  Receipt Date: 20110119
  Transmission Date: 20111222
  Serious: No
  Sender: FDA-Public Use
  Company Number: US-ASTRAZENECA-2011SE03227

PATIENT
  Age: 49 Year
  Sex: Female
  Weight: 84.4 kg

DRUGS (2)
  1. SEROQUEL XR [Suspect]
     Indication: BIPOLAR DISORDER
     Route: 048
     Dates: start: 20100719, end: 20110116
  2. DOXIPIN [Concomitant]

REACTIONS (6)
  - EMOTIONAL DISORDER [None]
  - DRUG DOSE OMISSION [None]
  - HEADACHE [None]
  - NERVOUSNESS [None]
  - HYPERHIDROSIS [None]
  - CRYING [None]
